FAERS Safety Report 20680104 (Version 1)
Quarter: 2022Q2

REPORT INFORMATION
  Report Type: Spontaneous
  Country: GB (occurrence: GB)
  Receive Date: 20220406
  Receipt Date: 20220406
  Transmission Date: 20220720
  Serious: Yes (Congenital Anomaly, Other)
  Sender: FDA-Public Use
  Company Number: GB-ABBVIE-22K-167-4347860-00

PATIENT

DRUGS (1)
  1. EPILIM [Suspect]
     Active Substance: VALPROATE SODIUM
     Indication: Maternal exposure timing unspecified
     Route: 064

REACTIONS (8)
  - Foetal anticonvulsant syndrome [Unknown]
  - Dyspraxia [Unknown]
  - Finger deformity [Unknown]
  - Lip disorder [Unknown]
  - Pharyngeal disorder [Unknown]
  - Speech disorder developmental [Unknown]
  - Learning disorder [Unknown]
  - Foetal exposure during pregnancy [Unknown]
